FAERS Safety Report 6838000-4 (Version None)
Quarter: 2010Q3

REPORT INFORMATION
  Report Type: 
  Country: None (occurrence: None)
  Receive Date: 20100713
  Receipt Date: 20070524
  Transmission Date: 20110219
  Serious: No
  Sender: FDA-Public Use
  Company Number: US-PFIZER INC-2007045204

PATIENT
  Sex: Female
  Weight: 63.636 kg

DRUGS (6)
  1. CHANTIX [Suspect]
     Indication: SMOKING CESSATION THERAPY
     Route: 048
     Dates: start: 20070401
  2. BUPRENORPHINE [Interacting]
     Indication: DRUG DEPENDENCE
     Dates: start: 20070401, end: 20070517
  3. SELEGILINE HYDROCHLORIDE [Concomitant]
     Indication: DEPRESSION
  4. MOTRIN [Concomitant]
  5. LOPERAMIDE HYDROCHLORIDE [Concomitant]
  6. TYLENOL [Concomitant]

REACTIONS (2)
  - DRUG INTERACTION [None]
  - URINE AMPHETAMINE POSITIVE [None]
